FAERS Safety Report 9691608 (Version 1)
Quarter: 2013Q4

REPORT INFORMATION
  Report Type: Spontaneous
  Country: JP (occurrence: JP)
  Receive Date: 20131115
  Receipt Date: 20131115
  Transmission Date: 20140711
  Serious: Yes (Death, Other)
  Sender: FDA-Public Use
  Company Number: PHHY2013JP129906

PATIENT
  Age: 27 Year
  Sex: Female

DRUGS (6)
  1. 5-FLUOROURACIL [Suspect]
     Indication: BREAST CANCER STAGE IV
     Dosage: 500 MG/M2, UNK
  2. 5-FLUOROURACIL [Suspect]
     Indication: BREAST CANCER METASTATIC
  3. CYCLOPHOSPHAMIDE [Suspect]
     Indication: BREAST CANCER STAGE IV
     Dosage: 500 MG/M2, UNK
  4. CYCLOPHOSPHAMIDE [Suspect]
     Indication: BREAST CANCER METASTATIC
  5. ADRIAMYCIN [Suspect]
     Indication: BREAST CANCER STAGE IV
     Dosage: 60 MG/M2, UNK
  6. ADRIAMYCIN [Suspect]
     Indication: BREAST CANCER METASTATIC

REACTIONS (4)
  - Respiratory failure [Fatal]
  - Lymphangiosis carcinomatosa [Fatal]
  - Metastases to liver [Unknown]
  - Maternal exposure during pregnancy [Unknown]
